FAERS Safety Report 23256230 (Version 1)
Quarter: 2023Q4

REPORT INFORMATION
  Report Type: Spontaneous
  Country: US (occurrence: US)
  Receive Date: 20231204
  Receipt Date: 20231204
  Transmission Date: 20240110
  Serious: Yes (Death, Life-Threatening)
  Sender: FDA-Public Use
  Company Number: US-drreddys-LIT/USA/23/0187748

PATIENT
  Age: 62 Year
  Sex: Female

DRUGS (1)
  1. AZACITIDINE [Suspect]
     Active Substance: AZACITIDINE
     Indication: Acute myelomonocytic leukaemia

REACTIONS (2)
  - Sepsis [Fatal]
  - Drug ineffective [Unknown]
